FAERS Safety Report 13957584 (Version 1)
Quarter: 2017Q3

REPORT INFORMATION
  Report Type: Spontaneous
  Country: US (occurrence: US)
  Receive Date: 20170911
  Receipt Date: 20170911
  Transmission Date: 20171128
  Serious: Yes (Other)
  Sender: FDA-Public Use
  Company Number: US-MYLANLABS-2017M1029813

PATIENT
  Sex: Female

DRUGS (4)
  1. ESCITALOPRAM [Suspect]
     Active Substance: ESCITALOPRAM OXALATE
     Indication: STRESS
     Dosage: 20 MG, QD
     Route: 048
     Dates: start: 2017
  2. ANTIHISTAMINES [Concomitant]
     Active Substance: ANTIHISTAMINES NOS
  3. ANTIBIOTICS [Concomitant]
     Active Substance: UNSPECIFIED INGREDIENT
  4. EAR DRP [Concomitant]

REACTIONS (4)
  - Suicidal ideation [Recovered/Resolved]
  - Agitation [Not Recovered/Not Resolved]
  - Sexual dysfunction [Not Recovered/Not Resolved]
  - Depression [Not Recovered/Not Resolved]

NARRATIVE: CASE EVENT DATE: 2017
